FAERS Safety Report 20777101 (Version 11)
Quarter: 2024Q1

REPORT INFORMATION
  Report Type: Other
  Country: CA (occurrence: None)
  Receive Date: 20220503
  Receipt Date: 20240215
  Transmission Date: 20240410
  Serious: Yes (Other)
  Sender: FDA-Public Use
  Company Number: CA-ROCHE-3081973

PATIENT
  Age: 38 Year
  Sex: Female

DRUGS (4)
  1. OCREVUS [Suspect]
     Active Substance: OCRELIZUMAB
     Indication: Relapsing-remitting multiple sclerosis
     Dosage: 300 MG AT DAY 0 AND 14, THEN 600 MG EVERY 6 MONTH
     Route: 042
     Dates: start: 20210408
  2. ESCITALOPRAM [Concomitant]
     Active Substance: ESCITALOPRAM OXALATE
  3. BUPROPION [Concomitant]
     Active Substance: BUPROPION
  4. ERGOCALCIFEROL [Concomitant]
     Active Substance: ERGOCALCIFEROL

REACTIONS (7)
  - COVID-19 [Recovered/Resolved]
  - Anaphylactic reaction [Unknown]
  - Gastroenteritis viral [Recovered/Resolved]
  - Influenza like illness [Not Recovered/Not Resolved]
  - Nasopharyngitis [Unknown]
  - Dental caries [Not Recovered/Not Resolved]
  - Gingival disorder [Unknown]

NARRATIVE: CASE EVENT DATE: 20220416
